FAERS Safety Report 19168756 (Version 1)
Quarter: 2021Q2

REPORT INFORMATION
  Report Type: Spontaneous
  Country: GB (occurrence: GB)
  Receive Date: 20210422
  Receipt Date: 20210422
  Transmission Date: 20210717
  Serious: Yes (Other)
  Sender: FDA-Public Use
  Company Number: GB-TEVA-2021-GB-1901867

PATIENT
  Age: 24 Year
  Sex: Female
  Weight: 63 kg

DRUGS (8)
  1. FLUOXETINE [Concomitant]
     Active Substance: FLUOXETINE HYDROCHLORIDE
     Dosage: 1 DOSAGE FORMS DAILY;
     Dates: start: 20190401
  2. NAPROXEN. [Concomitant]
     Active Substance: NAPROXEN
     Indication: MIGRAINE
     Dosage: 3 DOSAGE FORMS DAILY; AS NEEDED.
     Dates: start: 20210217, end: 20210317
  3. OMEPRAZOLE. [Concomitant]
     Active Substance: OMEPRAZOLE
     Indication: DYSPEPSIA
     Dosage: 1 DOSAGE FORMS DAILY;
     Dates: start: 20190401
  4. PREGABALIN. [Concomitant]
     Active Substance: PREGABALIN
     Dosage: 1 DOSAGE FORMS DAILY;
     Dates: start: 20200910
  5. DESOGESTREL [Concomitant]
     Active Substance: DESOGESTREL
     Dosage: 1 DOSAGE FORMS DAILY;
     Dates: start: 20190401
  6. PROPRANOLOL [Concomitant]
     Active Substance: PROPRANOLOL HYDROCHLORIDE
     Dosage: 3 DOSAGE FORMS DAILY;
     Dates: start: 20210217, end: 20210317
  7. TRIMETHOPRIM. [Suspect]
     Active Substance: TRIMETHOPRIM
     Dosage: 200MG
     Route: 065
     Dates: start: 20210408
  8. SUMATRIPTAN. [Concomitant]
     Active Substance: SUMATRIPTAN
     Indication: MIGRAINE
     Dosage: TAKE ONE AT ONSET OF MIGRAINE, REPEAT AFTER AT LEAST 2 HOURS IF MIGRAINE RETURNS.
     Dates: start: 20210217, end: 20210223

REACTIONS (5)
  - Throat tightness [Unknown]
  - Cold sweat [Unknown]
  - Dizziness [Unknown]
  - Feeling hot [Unknown]
  - Lip swelling [Recovered/Resolved]

NARRATIVE: CASE EVENT DATE: 20210408
